FAERS Safety Report 17625592 (Version 6)
Quarter: 2023Q1

REPORT INFORMATION
  Report Type: Report from Study
  Country: KR (occurrence: KR)
  Receive Date: 20200404
  Receipt Date: 20230217
  Transmission Date: 20230417
  Serious: Yes (Other)
  Sender: FDA-Public Use
  Company Number: KR-OTSUKA-2020_007524

PATIENT
  Age: 35 Year
  Sex: Male

DRUGS (137)
  1. PONATINIB [Suspect]
     Active Substance: PONATINIB
     Indication: Philadelphia positive acute lymphocytic leukaemia
     Dosage: 45 MILLIGRAM, QD
     Route: 048
     Dates: start: 20190717, end: 20190729
  2. PONATINIB [Suspect]
     Active Substance: PONATINIB
     Dosage: 30 MILLIGRAM, QD
     Route: 048
     Dates: start: 20190805, end: 20190812
  3. PONATINIB [Suspect]
     Active Substance: PONATINIB
     Dosage: 45 MILLIGRAM, QD
     Route: 048
     Dates: start: 20190813
  4. DASATINIB [Concomitant]
     Active Substance: DASATINIB
     Indication: Product used for unknown indication
     Dosage: 10 MILLIGRAM, QD
     Route: 048
     Dates: start: 20190304, end: 20190707
  5. ACLOVA                             /00587301/ [Concomitant]
     Indication: Infection prophylaxis
     Dosage: 400 MILLIGRAM, BID
     Route: 048
     Dates: start: 20180704, end: 20190715
  6. ACLOVA                             /00587301/ [Concomitant]
     Dosage: 400 MILLIGRAM, BID
     Route: 048
     Dates: start: 20190808, end: 20191127
  7. IDARUBICIN HYDROCHLORIDE [Concomitant]
     Active Substance: IDARUBICIN HYDROCHLORIDE
     Indication: Philadelphia positive acute lymphocytic leukaemia
     Dosage: 21.72 MILLIGRAM, QD
     Route: 042
     Dates: start: 20190704, end: 20190711
  8. CYTARABINE FAULDING [Concomitant]
     Indication: Philadelphia positive acute lymphocytic leukaemia
     Dosage: 3620 MILLIGRAM, QD
     Route: 042
     Dates: start: 20190704, end: 20190708
  9. CYTARABINE FAULDING [Concomitant]
     Dosage: 3620 MILLIGRAM, BID
     Route: 042
     Dates: start: 20190709, end: 20190711
  10. AMPHOJEL                           /00057401/ [Concomitant]
     Indication: Prophylaxis
     Dosage: 300 MILLIGRAM, BID
     Route: 048
     Dates: start: 20180419, end: 20190714
  11. AMPHOJEL                           /00057401/ [Concomitant]
     Indication: Dyspepsia
     Dosage: 300 MILLIGRAM, BID
     Route: 048
     Dates: start: 20190904, end: 20190904
  12. CITOPCIN                           /00697202/ [Concomitant]
     Indication: Infection prophylaxis
     Dosage: 500 MILLIGRAM, BID
     Route: 048
     Dates: start: 20180427, end: 20190715
  13. CITOPCIN                           /00697202/ [Concomitant]
     Indication: Febrile neutropenia
     Dosage: 500 MILLIGRAM, BID
     Route: 048
     Dates: start: 20191004, end: 20191203
  14. RANITIDINE HYDROCHLORIDE [Concomitant]
     Active Substance: RANITIDINE HYDROCHLORIDE
     Indication: Haematochezia
     Dosage: 50 MILLIGRAM, QD
     Route: 042
     Dates: start: 20190703, end: 20190703
  15. RANITIDINE HYDROCHLORIDE [Concomitant]
     Active Substance: RANITIDINE HYDROCHLORIDE
     Indication: Haematochezia
  16. DEXAMETHASONE [Concomitant]
     Active Substance: DEXAMETHASONE
     Indication: Febrile neutropenia
     Dosage: 10 MILLIGRAM, BID
     Route: 042
     Dates: start: 20190703, end: 20190708
  17. DEXAMETHASONE [Concomitant]
     Active Substance: DEXAMETHASONE
     Indication: Prophylaxis
     Dosage: 5 MILLIGRAM, QD
     Route: 042
     Dates: start: 20190808, end: 20190808
  18. DEXAMETHASONE [Concomitant]
     Active Substance: DEXAMETHASONE
     Indication: Febrile neutropenia
     Dosage: 5 MILLIGRAM, QD
     Route: 042
     Dates: start: 20190814, end: 20190816
  19. DEXAMETHASONE [Concomitant]
     Active Substance: DEXAMETHASONE
     Dosage: 10 MILLIGRAM, BID
     Route: 042
     Dates: start: 20190904, end: 20190905
  20. DEXAMETHASONE [Concomitant]
     Active Substance: DEXAMETHASONE
     Dosage: 5 MILLIGRAM, QD
     Route: 042
     Dates: start: 20191124, end: 20191124
  21. DEXAMETHASONE [Concomitant]
     Active Substance: DEXAMETHASONE
     Dosage: 5 MILLIGRAM, QD
     Route: 042
     Dates: start: 20191124, end: 20191224
  22. DEXAMETHASONE [Concomitant]
     Active Substance: DEXAMETHASONE
     Dosage: 5 MILLIGRAM, QD
     Route: 042
     Dates: start: 20191227, end: 20191227
  23. FASTURTEC [Concomitant]
     Active Substance: RASBURICASE
     Indication: Prophylaxis
     Dosage: 6 MILLIGRAM, QD
     Route: 042
     Dates: start: 20190704, end: 20190705
  24. FASTURTEC [Concomitant]
     Active Substance: RASBURICASE
     Indication: Gout
     Dosage: 12 MILLIGRAM
     Route: 065
  25. FLUCONAZOLE [Concomitant]
     Active Substance: FLUCONAZOLE
     Indication: Infection prophylaxis
     Dosage: 100 MILLIGRAM, BID
     Route: 048
     Dates: start: 20190703, end: 20190714
  26. FLUCONAZOLE [Concomitant]
     Active Substance: FLUCONAZOLE
     Dosage: 100 MILLIGRAM, BID
     Route: 048
     Dates: start: 20190808, end: 20190820
  27. FLUCONAZOLE [Concomitant]
     Active Substance: FLUCONAZOLE
     Dosage: 100 MILLIGRAM, BID
     Route: 048
     Dates: start: 20191107, end: 20200101
  28. LIDOCAINE [Concomitant]
     Active Substance: LIDOCAINE
     Indication: Pain prophylaxis
     Dosage: 15 MILLILITER, QD
     Route: 048
     Dates: start: 20190716, end: 20190716
  29. MAXIPIME [Concomitant]
     Active Substance: CEFEPIME HYDROCHLORIDE
     Indication: Infection prophylaxis
     Dosage: 2000 MILLIGRAM, BID
     Route: 042
     Dates: start: 20190710, end: 20190711
  30. MAXIPIME [Concomitant]
     Active Substance: CEFEPIME HYDROCHLORIDE
     Dosage: 2000 MILLIGRAM, TID
     Route: 042
     Dates: start: 20191119, end: 20191120
  31. MAXIPIME [Concomitant]
     Active Substance: CEFEPIME HYDROCHLORIDE
     Dosage: 2000 MILLIGRAM, TID
     Route: 042
     Dates: start: 20190910, end: 20191004
  32. RAMOSETRON HYDROCHLORIDE [Concomitant]
     Active Substance: RAMOSETRON HYDROCHLORIDE
     Indication: Prophylaxis of nausea and vomiting
     Dosage: 0.3 MILLIGRAM, QD
     Route: 042
     Dates: start: 20190704, end: 20190710
  33. OCUMETHOLONE [Concomitant]
     Indication: Eye disorder prophylaxis
     Dosage: 5 MILLILITER, QD
     Route: 031
     Dates: start: 20190704, end: 20190711
  34. OCUMETHOLONE [Concomitant]
     Dosage: 5 MILLILITER, QD
     Route: 031
     Dates: start: 20190904, end: 20191107
  35. PANTOPRAZOLE SODIUM [Concomitant]
     Active Substance: PANTOPRAZOLE SODIUM
     Indication: Haematochezia
     Dosage: 200 MILLIGRAM, QD
     Route: 042
     Dates: start: 20190705, end: 20190707
  36. PANTOPRAZOLE SODIUM [Concomitant]
     Active Substance: PANTOPRAZOLE SODIUM
     Indication: Prophylaxis
     Dosage: 40 MILLIGRAM, QD
     Route: 042
     Dates: start: 20191218, end: 20191220
  37. PANTOPRAZOLE SODIUM [Concomitant]
     Active Substance: PANTOPRAZOLE SODIUM
     Indication: Dyspepsia
     Dosage: 20 MILLIGRAM, QD
     Route: 048
     Dates: start: 20191222
  38. PENIRAMIN [Concomitant]
     Indication: Prophylaxis
     Dosage: 4 MILLIGRAM, QD
     Route: 042
     Dates: start: 20190705, end: 20190716
  39. PENIRAMIN [Concomitant]
     Indication: Transfusion
     Dosage: 4 MILLIGRAM
     Route: 042
     Dates: start: 20190719
  40. PERATAM [Concomitant]
     Indication: Infection prophylaxis
     Dosage: 1 GRAM, BID
     Route: 042
     Dates: start: 20190703, end: 20190710
  41. PERIDEX                            /00016001/ [Concomitant]
     Indication: Prophylaxis
     Dosage: 6 GRAM, QD
     Route: 061
     Dates: start: 20190716, end: 20190716
  42. PERIDEX                            /00016001/ [Concomitant]
     Indication: Pruritus
     Dosage: 6 GRAM
     Route: 065
  43. MEPERIDINE [Concomitant]
     Active Substance: MEPERIDINE
     Indication: Pain prophylaxis
     Dosage: 25 MILLIGRAM, QD
     Route: 042
     Dates: start: 20190708, end: 20190708
  44. PHOSLO [Concomitant]
     Active Substance: CALCIUM ACETATE
     Indication: Prophylaxis
     Dosage: 1420 MILLIGRAM, TID
     Route: 048
     Dates: start: 20190706, end: 20190711
  45. PHOSLO [Concomitant]
     Active Substance: CALCIUM ACETATE
     Indication: Hypocalcaemia
     Dosage: 25560 MILLIGRAM
     Route: 065
  46. TAPOCIN [Concomitant]
     Indication: Infection prophylaxis
     Dosage: 400 MILLIGRAM, QD
     Route: 042
     Dates: start: 20190711, end: 20190714
  47. TAPOCIN [Concomitant]
     Indication: Febrile neutropenia
     Dosage: 400 MILLIGRAM, QD
     Route: 042
     Dates: start: 20190922, end: 20191004
  48. TAPOCIN [Concomitant]
     Dosage: 400 MILLIGRAM, QD
     Route: 042
     Dates: start: 20191119, end: 20191229
  49. TEICONIN [Concomitant]
     Indication: Infection prophylaxis
     Dosage: 400 MILLIGRAM, BID
     Route: 042
     Dates: start: 20190710, end: 20190710
  50. TEICONIN [Concomitant]
     Dosage: 400 MILLIGRAM, BID
     Route: 042
     Dates: start: 20190921, end: 20190921
  51. TEICONIN [Concomitant]
     Dosage: 400 MILLIGRAM, QD
     Route: 042
     Dates: start: 20191213, end: 20191213
  52. TRANEXAMIC ACID [Concomitant]
     Active Substance: TRANEXAMIC ACID
     Indication: Haematochezia
     Dosage: 500 MILLIGRAM, QD
     Route: 042
     Dates: start: 20190705, end: 20190710
  53. ACETAMINOPHEN [Concomitant]
     Active Substance: ACETAMINOPHEN
     Indication: Febrile neutropenia
     Dosage: 1300 MILLIGRAM, QD
     Route: 048
     Dates: start: 20190627, end: 20190716
  54. ACETAMINOPHEN [Concomitant]
     Active Substance: ACETAMINOPHEN
     Dosage: 1300 MILLIGRAM, QD
     Route: 048
     Dates: start: 20190724, end: 20191229
  55. CALCIUM CHLORIDE [Concomitant]
     Active Substance: CALCIUM CHLORIDE
     Indication: Hypocalcaemia
     Dosage: 600 MILLIGRAM, QD
     Route: 042
     Dates: start: 20190717, end: 20190722
  56. CALCIUM CHLORIDE [Concomitant]
     Active Substance: CALCIUM CHLORIDE
     Dosage: 600 MILLIGRAM, QD
     Route: 042
     Dates: start: 20190726, end: 20190810
  57. CALCIUM CHLORIDE [Concomitant]
     Active Substance: CALCIUM CHLORIDE
     Dosage: 600 MILLIGRAM, QD
     Route: 042
     Dates: start: 20190815, end: 20190815
  58. CALCIUM CHLORIDE [Concomitant]
     Active Substance: CALCIUM CHLORIDE
     Dosage: 600 MILLIGRAM, QD
     Route: 042
     Dates: start: 20190924, end: 20190924
  59. CANCIDAS [Concomitant]
     Active Substance: CASPOFUNGIN ACETATE
     Indication: Febrile neutropenia
     Dosage: 50 MILLIGRAM, QD
     Route: 042
     Dates: start: 20190717, end: 20190807
  60. PROPACETAMOL HYDROCHLORIDE [Concomitant]
     Active Substance: PROPACETAMOL HYDROCHLORIDE
     Indication: Febrile neutropenia
     Dosage: 1000 MILLIGRAM, QD
     Route: 042
     Dates: start: 20190717, end: 20190807
  61. PROPACETAMOL HYDROCHLORIDE [Concomitant]
     Active Substance: PROPACETAMOL HYDROCHLORIDE
     Dosage: 1000 MILLIGRAM, QD
     Route: 042
     Dates: start: 20190924, end: 20190924
  62. PROPACETAMOL HYDROCHLORIDE [Concomitant]
     Active Substance: PROPACETAMOL HYDROCHLORIDE
     Dosage: 1000 MILLIGRAM, QD
     Route: 042
     Dates: start: 20191121, end: 20191229
  63. NAXEN                              /00256201/ [Concomitant]
     Indication: Febrile neutropenia
     Dosage: 500 MILLIGRAM, BID
     Route: 048
     Dates: start: 20190717, end: 20190802
  64. NAXEN                              /00256201/ [Concomitant]
     Dosage: 500 MILLIGRAM, BID
     Route: 048
     Dates: start: 20191130, end: 20191211
  65. LENOGRASTIM [Concomitant]
     Active Substance: LENOGRASTIM
     Indication: Febrile neutropenia
     Dosage: 250 MICROGRAM, QD
     Route: 042
     Dates: start: 20190717, end: 20190722
  66. MUCOSTEN [Concomitant]
     Indication: Prophylaxis
     Dosage: 300 MICROGRAM, BID
     Route: 042
     Dates: start: 20190717, end: 20190814
  67. MUCOSTEN [Concomitant]
     Indication: Respiratory tract congestion
     Dosage: 600 MILLIGRAM, BID
     Route: 042
     Dates: start: 20191128, end: 20191217
  68. NEXIUM [Concomitant]
     Active Substance: ESOMEPRAZOLE MAGNESIUM
     Indication: Prophylaxis
     Dosage: 40 MILLIGRAM, QD
     Route: 042
     Dates: start: 20190717, end: 20190814
  69. NEXIUM [Concomitant]
     Active Substance: ESOMEPRAZOLE MAGNESIUM
     Indication: Dyspepsia
     Dosage: 40 MILLIGRAM, QD
     Route: 048
     Dates: start: 20190815, end: 20190816
  70. NEXIUM [Concomitant]
     Active Substance: ESOMEPRAZOLE MAGNESIUM
     Dosage: 40 MILLIGRAM, QD
     Route: 042
     Dates: start: 20191209, end: 20191216
  71. SODIUM BICARBONATE [Concomitant]
     Active Substance: SODIUM BICARBONATE
     Indication: Prophylaxis
     Dosage: 40 MILLIEQUIVALENT, QD
     Route: 042
     Dates: start: 20180717, end: 20191230
  72. SODIUM BICARBONATE [Concomitant]
     Active Substance: SODIUM BICARBONATE
     Indication: Acidosis
     Dosage: 10 GRAM, QD
     Route: 048
     Dates: start: 20190717, end: 20200101
  73. PREDNISOLONE [Concomitant]
     Active Substance: PREDNISOLONE
     Indication: Febrile neutropenia
     Dosage: 30 MILLIGRAM, QD
     Route: 048
     Dates: start: 20190717, end: 20191229
  74. TANTUM                             /00052302/ [Concomitant]
     Indication: Infection prophylaxis
     Dosage: 100 MILLILITER, TID
     Route: 050
     Dates: start: 20190717, end: 20200101
  75. VANCOMYCIN [Concomitant]
     Active Substance: VANCOMYCIN
     Indication: Febrile neutropenia
     Dosage: 0.6 GRAM, TID
     Route: 042
     Dates: start: 20190717, end: 20190730
  76. CIPROFLOXACIN [Concomitant]
     Active Substance: CIPROFLOXACIN
     Indication: Infection prophylaxis
     Dosage: 400 MILLIGRAM, BID
     Route: 042
     Dates: start: 20190627, end: 20190627
  77. CIPROFLOXACIN [Concomitant]
     Active Substance: CIPROFLOXACIN
     Indication: Febrile neutropenia
     Dosage: 400 MILLIGRAM, BID
     Route: 042
     Dates: start: 20191204, end: 20191215
  78. NYSTATIN [Concomitant]
     Active Substance: NYSTATIN
     Indication: Infection prophylaxis
     Dosage: 5 MILLILITER, TID
     Route: 048
     Dates: start: 20190717, end: 20191217
  79. GLIVEC [Concomitant]
     Active Substance: IMATINIB MESYLATE
     Indication: Product used for unknown indication
     Dosage: 600 MILLIGRAM, QD
     Route: 048
     Dates: start: 20180427, end: 20180714
  80. SPRYCEL                            /05677301/ [Concomitant]
     Indication: Product used for unknown indication
     Dosage: 10 MILLIGRAM, QD
     Route: 048
     Dates: start: 20190304, end: 20190707
  81. FURTMAN [Concomitant]
     Indication: Decreased appetite
     Dosage: 0.5 MILLILITER, QD
     Route: 042
     Dates: start: 20190717, end: 20190816
  82. FURTMAN [Concomitant]
     Dosage: 0.2 MILLILITER, QD
     Route: 042
     Dates: start: 20191126, end: 20191228
  83. MAGNESIUM SULFATE [Concomitant]
     Active Substance: MAGNESIUM SULFATE
     Indication: Hypomagnesaemia
     Dosage: 3 GRAM, QD
     Route: 042
     Dates: start: 20190717, end: 20190719
  84. VITAMINS [Concomitant]
     Active Substance: VITAMINS
     Indication: Decreased appetite
     Dosage: 5 MILLILITER, QD
     Route: 042
     Dates: start: 20190717, end: 20190816
  85. VITAMINS [Concomitant]
     Active Substance: VITAMINS
     Dosage: 5 MILLILITER, QD
     Route: 042
     Dates: start: 20191126, end: 20191228
  86. PHOSTEN [Concomitant]
     Indication: Hypophosphataemia
     Dosage: 20 MILLILITER, QD
     Route: 042
     Dates: start: 20190717, end: 20190810
  87. LASIX [Concomitant]
     Active Substance: FUROSEMIDE
     Indication: Prophylaxis
     Dosage: 20 MILLIGRAM, QD
     Route: 042
     Dates: start: 20190717, end: 20190813
  88. LASIX [Concomitant]
     Active Substance: FUROSEMIDE
     Dosage: 20 MILLIGRAM, TID
     Route: 042
     Dates: start: 20190904, end: 20190904
  89. LASIX [Concomitant]
     Active Substance: FUROSEMIDE
     Dosage: 20 MILLIGRAM, TID
     Route: 042
     Dates: start: 20191116, end: 20191116
  90. LASIX [Concomitant]
     Active Substance: FUROSEMIDE
     Dosage: 20 MILLIGRAM, QD
     Route: 042
     Dates: start: 20191129, end: 20191231
  91. TASNA [Concomitant]
     Indication: Prophylaxis
     Dosage: 1000 MILLIGRAM, TID
     Route: 048
     Dates: start: 20190728, end: 20190729
  92. TASNA [Concomitant]
     Indication: Acidosis
     Dosage: 6000 MILLIGRAM
     Route: 065
  93. BEAROBAN [Concomitant]
     Indication: Prophylaxis
     Dosage: 10 GRAM
     Route: 061
     Dates: start: 20190716, end: 20190716
  94. PROFA [Concomitant]
     Indication: Febrile neutropenia
     Dosage: 1 GRAM, QD
     Route: 042
     Dates: start: 20190716, end: 20190716
  95. URSODIOL [Concomitant]
     Active Substance: URSODIOL
     Indication: Prophylaxis
     Dosage: 100 MILLIGRAM, TID
     Route: 048
     Dates: start: 20190703, end: 20190711
  96. URSODIOL [Concomitant]
     Active Substance: URSODIOL
     Indication: Aspartate aminotransferase increased
     Dosage: 2700 MILLIGRAM
     Route: 065
  97. DIFLUCAN [Concomitant]
     Active Substance: FLUCONAZOLE
     Indication: Prophylaxis
     Dosage: 5 MILLILITER, QD
     Route: 048
     Dates: start: 20190731, end: 20190811
  98. DIFLUCAN [Concomitant]
     Active Substance: FLUCONAZOLE
     Indication: Infection
     Dosage: 60 MILLILITER
     Route: 065
  99. GRASIN [Concomitant]
     Indication: Febrile neutropenia
     Dosage: 300 MICROGRAM, QD
     Route: 058
     Dates: start: 20190723, end: 20191226
  100. Levoplus [Concomitant]
     Indication: Prophylaxis
     Dosage: 750 MILLIGRAM, QD
     Route: 048
     Dates: start: 20190812, end: 20200101
  101. Levoplus [Concomitant]
     Indication: Infection
     Dosage: 1500 MILLIGRAM
     Route: 065
  102. Naxen [Concomitant]
     Indication: Febrile neutropenia
     Dosage: 500 MILLIGRAM, BID
     Route: 048
     Dates: start: 20190717, end: 20190802
  103. Naxen [Concomitant]
     Dosage: 500 MILLIGRAM, BID
     Route: 048
     Dates: start: 20191130, end: 20191211
  104. SULFAMETHOXAZOLE\TRIMETHOPRIM [Concomitant]
     Active Substance: SULFAMETHOXAZOLE\TRIMETHOPRIM
     Indication: Infection prophylaxis
     Dosage: UNK, QD
     Route: 048
     Dates: start: 20190803, end: 20191231
  105. TOPISOL MILK LOTION [Concomitant]
     Indication: Prophylaxis
     Dosage: 50 GRAM, BID
     Route: 061
     Dates: start: 20190801, end: 20191205
  106. TOPISOL MILK LOTION [Concomitant]
     Indication: Pruritus
     Dosage: 1300 GRAM
     Route: 065
  107. TRAMADOL HYDROCHLORIDE [Concomitant]
     Active Substance: TRAMADOL HYDROCHLORIDE
     Indication: Febrile neutropenia
     Dosage: 50 MILLIGRAM, QD
     Route: 042
     Dates: start: 20190812, end: 20190812
  108. TRAMADOL HYDROCHLORIDE [Concomitant]
     Active Substance: TRAMADOL HYDROCHLORIDE
     Dosage: 50 MILLIGRAM, QD
     Route: 042
     Dates: start: 20191126
  109. ZYVOX [Concomitant]
     Active Substance: LINEZOLID
     Indication: Febrile neutropenia
     Dosage: 600 MILLIGRAM, BID
     Route: 042
     Dates: start: 20190731, end: 20190816
  110. AMIKACIN SULFATE [Concomitant]
     Active Substance: AMIKACIN SULFATE
     Indication: Febrile neutropenia
     Dosage: 500 MILLIGRAM, BID
     Route: 042
     Dates: start: 20190910, end: 20191001
  111. AMIKACIN SULFATE [Concomitant]
     Active Substance: AMIKACIN SULFATE
     Dosage: 1000 MILLIGRAM, QD
     Route: 042
     Dates: start: 20191123, end: 20191230
  112. BETADINE GYNECOLOGICAL [Concomitant]
     Indication: Infection prophylaxis
     Dosage: 360 MILLILITER, QD
     Route: 061
     Dates: start: 20191122, end: 20200101
  113. ASPARAGINASE [Concomitant]
     Active Substance: ASPARAGINASE
     Indication: Adverse drug reaction
     Dosage: UNK, QD
     Route: 042
     Dates: start: 20190919
  114. ASPARAGINASE [Concomitant]
     Active Substance: ASPARAGINASE
     Dosage: UNK, QD
     Route: 042
     Dates: start: 20191109, end: 20191109
  115. ASPARAGINASE [Concomitant]
     Active Substance: ASPARAGINASE
     Dosage: UNK, QD
     Route: 042
     Dates: start: 20191122
  116. MEROPENEM [Concomitant]
     Active Substance: MEROPENEM
     Indication: Febrile neutropenia
     Dosage: 1 GRAM, TID
     Route: 042
     Dates: start: 20191121, end: 20191125
  117. METHOTREXATE [Concomitant]
     Active Substance: METHOTREXATE
     Indication: Adverse drug reaction
     Dosage: 15 MILLIGRAM, QD
     Route: 042
     Dates: start: 20191002
  118. METHOTREXATE [Concomitant]
     Active Substance: METHOTREXATE
     Dosage: 42.75 MILLIGRAM, QD
     Route: 042
     Dates: start: 20191002
  119. METHOTREXATE [Concomitant]
     Active Substance: METHOTREXATE
     Dosage: 20 MILLIGRAM, QD
     Route: 042
     Dates: start: 20191121, end: 20191121
  120. METHOTREXATE [Concomitant]
     Active Substance: METHOTREXATE
     Dosage: 5500 MILLIGRAM, QD
     Route: 042
     Dates: start: 20191121, end: 20191121
  121. VINCRISTINE [Concomitant]
     Active Substance: VINCRISTINE
     Indication: Adverse drug reaction
     Dosage: 2 MILLIGRAM, QD
     Route: 042
     Dates: start: 20191121, end: 20191121
  122. AMPICILLIN [Concomitant]
     Active Substance: AMPICILLIN
     Indication: Infection prophylaxis
     Dosage: 1000 MILLIGRAM, QD
     Route: 048
     Dates: start: 20190717, end: 20191229
  123. HYDROCORTISONE SODIUM SUCCINATE [Concomitant]
     Active Substance: HYDROCORTISONE SODIUM SUCCINATE
     Indication: Adverse drug reaction
     Dosage: 50 MILLIGRAM, QD
     Route: 042
     Dates: start: 20191002, end: 20191002
  124. COTRIM [Concomitant]
     Active Substance: SULFAMETHOXAZOLE\TRIMETHOPRIM
     Indication: Febrile neutropenia
     Dosage: 5 MILLILITER, QD
     Route: 042
     Dates: start: 20191128, end: 20191217
  125. CYCLOPHOSPHAMIDE [Concomitant]
     Active Substance: CYCLOPHOSPHAMIDE
     Indication: Adverse drug reaction
     Dosage: 855 MILLIGRAM, QD
     Route: 042
     Dates: start: 20191002, end: 20191003
  126. PREDNISOLONE VALERATE ACETATE [Concomitant]
     Active Substance: PREDNISOLONE VALERATE ACETATE
     Indication: Prophylaxis
     Dosage: 20 GRAM, BID
     Route: 061
     Dates: start: 20191205, end: 20191205
  127. PREDNISOLONE VALERATE ACETATE [Concomitant]
     Active Substance: PREDNISOLONE VALERATE ACETATE
     Indication: Pain
  128. MORPHINE SULFATE [Concomitant]
     Active Substance: MORPHINE SULFATE
     Indication: Mucosal inflammation
     Dosage: 15 MILLIGRAM, QD
     Route: 042
     Dates: start: 20190717, end: 20190927
  129. MORPHINE SULFATE [Concomitant]
     Active Substance: MORPHINE SULFATE
     Dosage: 10 MILLIGRAM, QD
     Route: 042
     Dates: start: 20190717, end: 20190814
  130. MORPHINE SULFATE [Concomitant]
     Active Substance: MORPHINE SULFATE
     Dosage: 30 MILLIGRAM, QD
     Route: 042
     Dates: start: 20190928, end: 20191002
  131. MORPHINE SULFATE [Concomitant]
     Active Substance: MORPHINE SULFATE
     Dosage: 10 MILLIGRAM, QD
     Route: 042
     Dates: start: 20191127, end: 20191203
  132. MORPHINE SULFATE [Concomitant]
     Active Substance: MORPHINE SULFATE
     Dosage: 20 MILLIGRAM, QD
     Route: 042
     Dates: start: 20191204, end: 20191227
  133. PURINETONE [Concomitant]
     Indication: Adverse drug reaction
     Dosage: 100 MILLIGRAM, QD
     Route: 048
     Dates: start: 20190918, end: 20191126
  134. SMECTA [Concomitant]
     Active Substance: MONTMORILLONITE
     Indication: Prophylaxis against diarrhoea
     Dosage: 20 MILLILITER, TID
     Route: 048
     Dates: start: 20191202, end: 20191228
  135. ZOLPIDEM TARTRATE [Concomitant]
     Active Substance: ZOLPIDEM TARTRATE
     Indication: Prophylaxis
     Dosage: 6.25 MILLIGRAM, QD
     Route: 048
     Dates: start: 20190829, end: 20191004
  136. ZOLPIDEM TARTRATE [Concomitant]
     Active Substance: ZOLPIDEM TARTRATE
     Indication: Insomnia
  137. MESNA [Concomitant]
     Active Substance: MESNA
     Indication: Prophylaxis
     Dosage: 855 MILLIGRAM, QD
     Route: 042
     Dates: start: 20191002, end: 20191003

REACTIONS (6)
  - Pseudomonas infection [Recovered/Resolved]
  - Pneumonia fungal [Recovered/Resolved]
  - Nausea [Recovered/Resolved]
  - Aspartate aminotransferase increased [Recovered/Resolved]
  - Alanine aminotransferase increased [Recovered/Resolved]
  - Rash [Recovered/Resolved]

NARRATIVE: CASE EVENT DATE: 20190717
